FAERS Safety Report 9834946 (Version 3)
Quarter: 2015Q3

REPORT INFORMATION
  Report Type: Spontaneous
  Country: FR (occurrence: FR)
  Receive Date: 20140122
  Receipt Date: 20150814
  Transmission Date: 20151125
  Serious: Yes (Hospitalization, Other)
  Sender: FDA-Public Use
  Company Number: FR-ACTELION-A-CH2014-93612

PATIENT
  Age: 71 Year
  Sex: Female
  Weight: 77 kg

DRUGS (7)
  1. COOLMETEC [Concomitant]
     Active Substance: HYDROCHLOROTHIAZIDE\OLMESARTAN MEDOXOMIL
     Dosage: UNK
     Dates: start: 201010
  2. TRACLEER [Suspect]
     Active Substance: BOSENTAN
     Indication: PULMONARY ARTERIAL HYPERTENSION
     Dosage: 125 MG, BID
     Route: 048
     Dates: start: 20110614, end: 20130807
  3. TRACLEER [Suspect]
     Active Substance: BOSENTAN
     Dosage: 62.5 MG, BID
     Route: 048
     Dates: start: 20110516, end: 20110613
  4. BI-TILDIEM [Concomitant]
     Active Substance: DILTIAZEM
     Dosage: 90 UNK, BID
     Dates: start: 201105
  5. METFORMINE [Concomitant]
     Active Substance: METFORMIN HYDROCHLORIDE
     Dosage: 850 MG, BID
     Dates: start: 201209
  6. LASIX [Concomitant]
     Active Substance: FUROSEMIDE
     Dosage: 40 MG, BID
     Dates: start: 201001
  7. PREVISCAN [Concomitant]
     Active Substance: FLUINDIONE
     Dosage: UNK
     Dates: start: 201001

REACTIONS (12)
  - Jaundice [Recovered/Resolved]
  - Hepatocellular injury [Recovered/Resolved]
  - Alanine aminotransferase increased [Recovered/Resolved]
  - Biopsy liver [Unknown]
  - Blood bilirubin increased [Recovered/Resolved]
  - Blood alkaline phosphatase increased [Recovered/Resolved]
  - Cholestasis [Recovered/Resolved]
  - Varices oesophageal [Unknown]
  - Drug-induced liver injury [Recovered/Resolved]
  - Aspartate aminotransferase increased [Recovered/Resolved]
  - Gamma-glutamyltransferase increased [Recovered/Resolved]
  - Non-alcoholic steatohepatitis [Unknown]

NARRATIVE: CASE EVENT DATE: 201308
